FAERS Safety Report 13075938 (Version 1)
Quarter: 2016Q4

REPORT INFORMATION
  Report Type: Spontaneous
  Country: US (occurrence: US)
  Receive Date: 20161230
  Receipt Date: 20161230
  Transmission Date: 20170207
  Serious: Yes (Disabling, Other)
  Sender: FDA-Public Use
  Company Number: None

PATIENT
  Age: 82 Year
  Sex: Female
  Weight: 50.35 kg

DRUGS (4)
  1. TYLENOL [Suspect]
     Active Substance: ACETAMINOPHEN
  2. ACETAMINOPHEN. [Concomitant]
     Active Substance: ACETAMINOPHEN
  3. AZITHROMYCIN ANHYDROUS. [Suspect]
     Active Substance: AZITHROMYCIN ANHYDROUS
     Indication: CELLULITIS
     Dosage: FREQUENCY - 1 FIRST DAY, 1 PILL NEXT 4 DAYS?
     Route: 048
     Dates: start: 20160915, end: 20160920
  4. AZITHROMYCIN ANHYDROUS. [Suspect]
     Active Substance: AZITHROMYCIN ANHYDROUS
     Indication: INFECTED BITE
     Dosage: FREQUENCY - 1 FIRST DAY, 1 PILL NEXT 4 DAYS?
     Route: 048
     Dates: start: 20160915, end: 20160920

REACTIONS (6)
  - Ear disorder [None]
  - Thrombosis [None]
  - Herpes zoster [None]
  - Ocular hyperaemia [None]
  - Eye irritation [None]
  - Ear haemorrhage [None]

NARRATIVE: CASE EVENT DATE: 20160930
